FAERS Safety Report 6064590-8 (Version None)
Quarter: 2009Q1

REPORT INFORMATION
  Report Type: 
  Country: None (occurrence: None)
  Receive Date: 20090204
  Receipt Date: 20090128
  Transmission Date: 20090719
  Serious: Yes (Hospitalization)
  Sender: FDA-Public Use
  Company Number: B0556388A

PATIENT
  Age: 81 Year
  Sex: Female

DRUGS (12)
  1. DEROXAT [Suspect]
     Dosage: 10MG PER DAY
     Route: 048
     Dates: start: 20081120, end: 20081128
  2. COKENZEN [Suspect]
     Dosage: 1TAB PER DAY
     Route: 048
     Dates: end: 20081128
  3. ELISOR [Concomitant]
     Dosage: 20MG PER DAY
     Route: 065
  4. KARDEGIC [Concomitant]
     Dosage: 75MG PER DAY
     Route: 065
  5. TRINITRINE [Concomitant]
     Route: 065
  6. INIPOMP [Concomitant]
     Dosage: 20MG PER DAY
     Route: 065
  7. PIASCLEDINE [Concomitant]
     Dosage: 300MG PER DAY
     Route: 065
  8. VASTAREL [Concomitant]
     Dosage: 35MG PER DAY
     Route: 065
  9. NULYTELY [Concomitant]
     Dosage: 1UNIT PER DAY
     Route: 065
  10. NEBILOX [Concomitant]
     Dosage: 5MG PER DAY
     Route: 065
  11. COLECALCIFEROL + CALCIUM CARBONATE [Concomitant]
     Dosage: 1000MG PER DAY
     Route: 065
  12. LYRICA [Concomitant]
     Dosage: 25MG PER DAY
     Route: 048
     Dates: start: 20081120

REACTIONS (6)
  - DIARRHOEA [None]
  - DYSKINESIA [None]
  - GENERAL PHYSICAL HEALTH DETERIORATION [None]
  - HYPOKALAEMIA [None]
  - HYPONATRAEMIA [None]
  - TRANSAMINASES INCREASED [None]
